FAERS Safety Report 17612494 (Version 1)
Quarter: 2020Q2

REPORT INFORMATION
  Report Type: Spontaneous
  Country: IT (occurrence: IT)
  Receive Date: 20200401
  Receipt Date: 20200401
  Transmission Date: 20200713
  Serious: Yes (Hospitalization)
  Sender: FDA-Public Use
  Company Number: IT-NOVOPROD-720458

PATIENT
  Age: 43 Year
  Sex: Male

DRUGS (4)
  1. NOVORAPID [Suspect]
     Active Substance: INSULIN ASPART
     Dosage: 19 DF, QD (3 + 8 + 8 U)
     Route: 058
  2. NOVORAPID [Suspect]
     Active Substance: INSULIN ASPART
     Dosage: UNK(INSTEAD OF GIVING LANTUS HE ACCIDENTALLY TOOK NOVORAPID)
     Route: 058
     Dates: end: 20200229
  3. LANTUS [Suspect]
     Active Substance: INSULIN GLARGINE
     Indication: TYPE 1 DIABETES MELLITUS
     Dosage: 18U EVENING
     Route: 065
  4. NOVORAPID [Suspect]
     Active Substance: INSULIN ASPART
     Indication: TYPE 1 DIABETES MELLITUS
     Dosage: 16 DF, QD
     Route: 058
     Dates: start: 20200229

REACTIONS (3)
  - Tachycardia [Recovering/Resolving]
  - Hypoglycaemia [Recovering/Resolving]
  - Wrong product administered [Unknown]

NARRATIVE: CASE EVENT DATE: 20200229
